FAERS Safety Report 5156666-4 (Version None)
Quarter: 2006Q4

REPORT INFORMATION
  Report Type: 
  Country: None (occurrence: None)
  Receive Date: 20061115
  Receipt Date: 20061107
  Transmission Date: 20070319
  Serious: Yes (Death)
  Sender: FDA-Public Use
  Company Number: T200601275

PATIENT
  Age: 41 Year
  Sex: Female
  Weight: 112.5 kg

DRUGS (5)
  1. METHADONE HCL [Suspect]
     Indication: BIPOLAR DISORDER
     Dosage: 40 MG, QD, ORAL
     Route: 048
     Dates: start: 20040615, end: 20060504
  2. KLONOPIN [Suspect]
     Indication: BIPOLAR DISORDER
     Dosage: 1 MG, TID, ORAL
     Route: 048
     Dates: start: 20060415, end: 20060504
  3. SEROQUEL [Suspect]
     Indication: BIPOLAR DISORDER
     Dates: end: 20060504
  4. LITHIUM CARBONATE [Concomitant]
  5. PREVACID [Concomitant]

REACTIONS (13)
  - AFFECT LABILITY [None]
  - AGGRESSION [None]
  - AGITATION [None]
  - ANGER [None]
  - ANXIETY [None]
  - DRUG INTERACTION [None]
  - DRUG TOXICITY [None]
  - HALLUCINATION, AUDITORY [None]
  - HYPOMANIA [None]
  - IRRITABILITY [None]
  - PARANOIA [None]
  - SOMNOLENCE [None]
  - TREATMENT NONCOMPLIANCE [None]
